FAERS Safety Report 4911065-2 (Version None)
Quarter: 2006Q1

REPORT INFORMATION
  Report Type: 
  Country: None (occurrence: None)
  Receive Date: 20060214
  Receipt Date: 20050330
  Transmission Date: 20060701
  Serious: Yes (Death)
  Sender: FDA-Public Use
  Company Number: CA-SANOFI-SYNTHELABO-F01200500481

PATIENT
  Sex: Male

DRUGS (8)
  1. OXALIPLATIN [Suspect]
     Indication: COLORECTAL CANCER METASTATIC
     Dosage: 130MG/M2 1 X PER 3 WEEK
     Route: 042
  2. CAPECITABINE [Suspect]
     Dosage: 1000MG/M2 TWICE DAILY FOR 2 WEEKS, Q3W
     Route: 048
  3. BEVACIZUMAB [Suspect]
     Route: 042
  4. COUMADIN [Concomitant]
     Dosage: UNK
     Route: 065
     Dates: start: 20040819
  5. VITAMINS NOS [Concomitant]
     Dosage: UNK
     Route: 065
     Dates: start: 20020615
  6. KYTRIL [Concomitant]
     Dosage: UNK
     Route: 065
     Dates: start: 20040824
  7. DECADRON SRC [Concomitant]
     Dosage: UNK
     Route: 065
     Dates: start: 20040824
  8. ZOPICLONE [Concomitant]
     Dosage: UNK
     Route: 065
     Dates: start: 20041115

REACTIONS (1)
  - DEATH [None]
